FAERS Safety Report 15321782 (Version 1)
Quarter: 2018Q3

REPORT INFORMATION
  Report Type: Spontaneous
  Country: US (occurrence: US)
  Receive Date: 20180827
  Receipt Date: 20180827
  Transmission Date: 20181010
  Serious: Yes (Other)
  Sender: FDA-Public Use
  Company Number: US-TEVA-2018-US-946920

PATIENT
  Sex: Female
  Weight: 115 kg

DRUGS (1)
  1. PROGLYCEM SUSPENSION [Suspect]
     Active Substance: DIAZOXIDE
     Indication: BLOOD GLUCOSE DECREASED
     Route: 065
     Dates: start: 2017

REACTIONS (5)
  - Loss of consciousness [Unknown]
  - Glycosylated haemoglobin increased [Unknown]
  - Nausea [Unknown]
  - Syncope [Unknown]
  - Dysgeusia [Unknown]
